FAERS Safety Report 12961348 (Version 1)
Quarter: 2016Q4

REPORT INFORMATION
  Report Type: Spontaneous
  Country: JP (occurrence: JP)
  Receive Date: 20161121
  Receipt Date: 20161121
  Transmission Date: 20170207
  Serious: Yes (Death)
  Sender: FDA-Public Use
  Company Number: JP-PFIZER INC-2016535185

PATIENT
  Age: 80 Year
  Sex: Male

DRUGS (2)
  1. ZOSYN [Suspect]
     Active Substance: PIPERACILLIN SODIUM\TAZOBACTAM SODIUM
     Dosage: 2.25 G, UNK
     Route: 042
     Dates: start: 201312, end: 201312
  2. ZOSYN [Suspect]
     Active Substance: PIPERACILLIN SODIUM\TAZOBACTAM SODIUM
     Dosage: 4.5 G, UNK
     Route: 042
     Dates: start: 201311, end: 201312

REACTIONS (2)
  - Disseminated intravascular coagulation [Fatal]
  - Toxic epidermal necrolysis [Fatal]
